FAERS Safety Report 5551126-0 (Version None)
Quarter: 2007Q4

REPORT INFORMATION
  Report Type: 
  Country: None (occurrence: None)
  Receive Date: 20071212
  Receipt Date: 20071203
  Transmission Date: 20080405
  Serious: Yes (Hospitalization, Disabling)
  Sender: FDA-Public Use
  Company Number: B0498533A

PATIENT
  Age: 79 Year
  Sex: Male
  Weight: 68 kg

DRUGS (1)
  1. FONDAPARINUX [Suspect]
     Dosage: 1.5MG PER DAY
     Route: 058

REACTIONS (2)
  - BALANCE DISORDER [None]
  - MALAISE [None]
